FAERS Safety Report 8953601 (Version 1)
Quarter: 2012Q4

REPORT INFORMATION
  Report Type: 
  Country: CO (occurrence: CO)
  Receive Date: 20121206
  Receipt Date: 20121206
  Transmission Date: 20130627
  Serious: Yes (Hospitalization)
  Sender: FDA-Public Use
  Company Number: CO-PFIZER INC-2011046361

PATIENT
  Age: 81 Year
  Sex: Female

DRUGS (11)
  1. LYRICA [Suspect]
     Indication: NEUROPATHIC PAIN
     Dosage: 75 mg, as needed
     Route: 048
     Dates: start: 2009
  2. LYRICA [Suspect]
     Indication: PAIN
     Dosage: 75 mg, 3x/day
     Route: 048
     Dates: start: 2010
  3. LYRICA [Suspect]
     Dosage: 75 mg, as needed
     Route: 048
     Dates: start: 201010
  4. EPAMIN [Suspect]
     Indication: EPILEPSY
     Dosage: 100 mg, 1x/day
     Route: 048
     Dates: start: 1987
  5. LOSARTAN [Concomitant]
     Indication: HYPERTENSION ARTERIAL
     Dosage: 50 mg, 1x/day
     Route: 048
     Dates: start: 2010
  6. ASA [Concomitant]
     Indication: CIRCULATING ANTICOAGULANT
     Dosage: 100 mg, 1x/day
     Route: 048
     Dates: start: 2010
  7. OMEPRAZOL [Concomitant]
     Indication: GASTRITIS
     Dosage: 50 mg, UNK
     Route: 065
     Dates: start: 2011
  8. GEMFIBROZIL [Concomitant]
     Indication: TRIGLYCERIDES HIGH
     Dosage: 600 mg, 1x/day
     Dates: start: 2011
  9. QUETIAPINE [Concomitant]
     Indication: PSYCHIATRIC DISORDER NOS
     Dosage: 100 mg, 1x/day
     Dates: start: 201206
  10. TIMOLOL [Concomitant]
     Indication: GLAUCOMA
     Dosage: 5 ml, UNK
     Route: 065
  11. TIMOLOL [Concomitant]
     Indication: CATARACTS

REACTIONS (1)
  - Cerebral infarction [Recovering/Resolving]
